FAERS Safety Report 7234232-4 (Version None)
Quarter: 2011Q1

REPORT INFORMATION
  Report Type: 
  Country: None (occurrence: None)
  Receive Date: 20110119
  Receipt Date: 20110104
  Transmission Date: 20110831
  Serious: No
  Sender: FDA-Public Use
  Company Number: US-B.I. PHARMACEUTICALS,INC./RIDGEFIELD-2011-BP-00638BP

PATIENT
  Sex: Male

DRUGS (2)
  1. MICARDIS [Suspect]
     Dosage: 80 MG
  2. MICARDIS [Suspect]
     Dosage: 40 MG

REACTIONS (2)
  - BREAST TENDERNESS [None]
  - BREAST SWELLING [None]
